FAERS Safety Report 6616067-6 (Version None)
Quarter: 2010Q1

REPORT INFORMATION
  Report Type: 
  Country: None (occurrence: None)
  Receive Date: 20100305
  Receipt Date: 20100222
  Transmission Date: 20100710
  Serious: Yes (Other)
  Sender: FDA-Public Use
  Company Number: PHEH2008US03405

PATIENT
  Sex: Male

DRUGS (15)
  1. AREDIA [Suspect]
     Dosage: MONTHLY
     Dates: end: 20070401
  2. INTERFERON [Concomitant]
  3. PROCRIT                            /00909301/ [Concomitant]
  4. DECADRON [Concomitant]
  5. LORTAB [Concomitant]
     Dosage: 5-500MG Q4 HRS PRN
  6. MONTELUKAST SODIUM [Concomitant]
     Dosage: 1 TAB AT BEDTIME
     Route: 048
  7. PENICILLIN V POTASSIUM [Concomitant]
     Dosage: 1 TAB Q8 HRS
  8. PERIDEX [Concomitant]
     Dosage: 15CC FOR 30 SEC 3X QD
  9. AMOXICILLIN [Concomitant]
     Dosage: 500MG
     Dates: start: 20080107
  10. FLAGYL [Concomitant]
     Dosage: UNK
     Dates: start: 20080107
  11. TRAMADOL HCL [Concomitant]
     Dosage: 50MG
  12. CLINDAMYCIN [Concomitant]
     Dosage: 300 MG, UNK
  13. CHLORHEXIDINE GLUCONATE [Concomitant]
  14. PRAVASTATIN [Concomitant]
  15. HYDROCODONE [Concomitant]

REACTIONS (23)
  - ANGINA PECTORIS [None]
  - ANXIETY [None]
  - ARTHRALGIA [None]
  - BACK PAIN [None]
  - BONE DISORDER [None]
  - BONE PAIN [None]
  - COLONIC POLYP [None]
  - GASTROINTESTINAL DISORDER [None]
  - GENERAL PHYSICAL HEALTH DETERIORATION [None]
  - HYPERPLASIA [None]
  - HYPOAESTHESIA ORAL [None]
  - INFECTION [None]
  - INTERVERTEBRAL DISC COMPRESSION [None]
  - INTERVERTEBRAL DISC DEGENERATION [None]
  - JOINT EFFUSION [None]
  - OCCULT BLOOD POSITIVE [None]
  - ORAL CAVITY FISTULA [None]
  - ORAL DISORDER [None]
  - OSTEONECROSIS [None]
  - PAIN [None]
  - PAIN IN JAW [None]
  - POLYPECTOMY [None]
  - RHINORRHOEA [None]
